FAERS Safety Report 15715937 (Version 3)
Quarter: 2018Q4

REPORT INFORMATION
  Report Type: Spontaneous
  Country: CN (occurrence: CN)
  Receive Date: 20181212
  Receipt Date: 20181227
  Transmission Date: 20190205
  Serious: Yes (Other)
  Sender: FDA-Public Use
  Company Number: CN-UCBSA-2018054020

PATIENT
  Age: 39 Year
  Sex: Male
  Weight: 52 kg

DRUGS (1)
  1. KEPPRA [Suspect]
     Active Substance: LEVETIRACETAM
     Indication: EPILEPSY
     Dosage: 0.5 G, 2X/DAY (BID)
     Dates: start: 20170927, end: 20181027

REACTIONS (5)
  - Burning sensation [Recovered/Resolved]
  - Intentional product misuse [Unknown]
  - Epilepsy [Recovering/Resolving]
  - Loss of consciousness [Recovered/Resolved]
  - Headache [Unknown]

NARRATIVE: CASE EVENT DATE: 20181027
